FAERS Safety Report 22089027 (Version 1)
Quarter: 2023Q1

REPORT INFORMATION
  Report Type: Spontaneous
  Country: US (occurrence: None)
  Receive Date: 20230311
  Receipt Date: 20230311
  Transmission Date: 20230418
  Serious: No
  Sender: FDA-Public Use
  Company Number: None

PATIENT
  Age: 32 Year
  Sex: Male
  Weight: 112.5 kg

DRUGS (2)
  1. HEAD AND SHOULDERS 2IN1 DRY SCALP CARE WITH ALMOND AND COCONUT OIL [Suspect]
     Active Substance: PYRITHIONE ZINC
     Indication: Psoriasis
     Dosage: FREQUENCY : AS NEEDED;?
     Route: 061
     Dates: start: 20230306, end: 20230309
  2. HEAD AND SHOULDERS 2IN1 DRY SCALP CARE WITH ALMOND AND COCONUT OIL [Suspect]
     Active Substance: PYRITHIONE ZINC
     Indication: Dandruff

REACTIONS (1)
  - Application site rash [None]

NARRATIVE: CASE EVENT DATE: 20230308
